FAERS Safety Report 18822748 (Version 1)
Quarter: 2021Q1

REPORT INFORMATION
  Report Type: Spontaneous
  Country: US (occurrence: US)
  Receive Date: 20210202
  Receipt Date: 20210202
  Transmission Date: 20210419
  Serious: No
  Sender: FDA-Public Use
  Company Number: US-PAIPHARMA-2020-US-017266

PATIENT
  Sex: Male

DRUGS (1)
  1. NYSTATIN ORAL SUSPENSION USP [Suspect]
     Active Substance: NYSTATIN
     Indication: PRODUCT USED FOR UNKNOWN INDICATION
     Dosage: UNKNOWN
     Route: 065

REACTIONS (2)
  - Tongue erythema [Recovering/Resolving]
  - Swollen tongue [Recovering/Resolving]
